FAERS Safety Report 4879477-3 (Version None)
Quarter: 2005Q4

REPORT INFORMATION
  Report Type: 
  Country: None (occurrence: None)
  Receive Date: 20051209
  Receipt Date: 20050930
  Transmission Date: 20060501
  Serious: Yes (Death)
  Sender: FDA-Public Use
  Company Number: USA-2005-0021395

PATIENT
  Age: 25 Year
  Sex: Male
  Weight: 73 kg

DRUGS (5)
  1. OXYCODONE HCL [Suspect]
  2. CODEINE (CODEINE) [Suspect]
  3. HYDROCODONE BITARTRATE [Suspect]
  4. HYDROCODONE BITARTRATE [Concomitant]
  5. ALPRAZOLAM [Concomitant]

REACTIONS (2)
  - MULTIPLE DRUG OVERDOSE ACCIDENTAL [None]
  - POLYSUBSTANCE ABUSE [None]
